FAERS Safety Report 4920732-6 (Version None)
Quarter: 2006Q1

REPORT INFORMATION
  Report Type: 
  Country: None (occurrence: None)
  Receive Date: 20060223
  Receipt Date: 20050208
  Transmission Date: 20060701
  Serious: Yes (Life-Threatening)
  Sender: FDA-Public Use
  Company Number: FI-BOEHRINGER INGELHEIM PHARMACEUTICALS, INC.-2005-SW-00060SF

PATIENT
  Age: 46 Year
  Sex: Male

DRUGS (1)
  1. ATROVENT [Suspect]
     Indication: OBSTRUCTIVE AIRWAYS DISORDER
     Route: 055
     Dates: start: 20041230, end: 20050103

REACTIONS (5)
  - ANAPHYLACTIC SHOCK [None]
  - OBSTRUCTIVE AIRWAYS DISORDER [None]
  - OXYGEN SATURATION DECREASED [None]
  - RESPIRATORY FAILURE [None]
  - TACHYCARDIA [None]
